FAERS Safety Report 19073105 (Version 3)
Quarter: 2021Q2

REPORT INFORMATION
  Report Type: Report from Study
  Country: US (occurrence: US)
  Receive Date: 20210330
  Receipt Date: 20210614
  Transmission Date: 20210717
  Serious: Yes (Hospitalization)
  Sender: FDA-Public Use
  Company Number: US-ROCHE-2744332

PATIENT
  Age: 82 Year
  Sex: Male
  Weight: 62.8 kg

DRUGS (4)
  1. ATEZOLIZUMAB. [Suspect]
     Active Substance: ATEZOLIZUMAB
     Route: 042
     Dates: start: 20200915
  2. ATEZOLIZUMAB. [Suspect]
     Active Substance: ATEZOLIZUMAB
     Indication: BLADDER TRANSITIONAL CELL CARCINOMA
     Dosage: CYCLE 21 DAYS, 1200 MG IV ON DAY 1??DATE OF LAST DOSE ADMINISTERED : 14/JUL/2020
     Route: 042
     Dates: start: 20200623
  3. GEMCITABINE HYDROCHLORIDE. [Suspect]
     Active Substance: GEMCITABINE HYDROCHLORIDE
     Indication: BLADDER TRANSITIONAL CELL CARCINOMA
     Dosage: 27 MG/M2 IV TWICE WEEKLY FOR SIX WEEKS??DATE OF LAST DOSE ADMINISTERED : 17/JUL/2020
     Route: 042
     Dates: start: 20200623
  4. GEMCITABINE HYDROCHLORIDE. [Suspect]
     Active Substance: GEMCITABINE HYDROCHLORIDE
     Dosage: SUBJECT RECEIVED ALL REQUIRED DOSES OF GEMCITABINE REQUIRED BY THE PROTOCOL
     Route: 042
     Dates: start: 20200731

REACTIONS (5)
  - White blood cell count decreased [Recovering/Resolving]
  - Anaemia [Recovering/Resolving]
  - Acute kidney injury [Recovered/Resolved]
  - Dehydration [Recovered/Resolved]
  - Acute kidney injury [Recovering/Resolving]

NARRATIVE: CASE EVENT DATE: 20200720
